FAERS Safety Report 6242043-1 (Version None)
Quarter: 2009Q2

REPORT INFORMATION
  Report Type: 
  Country: None (occurrence: None)
  Receive Date: 20090623
  Receipt Date: 20090617
  Transmission Date: 20091009
  Serious: Yes (Death)
  Sender: FDA-Public Use
  Company Number: PHHY2009BR24288

PATIENT
  Sex: Female

DRUGS (7)
  1. DIOVAN [Suspect]
     Indication: HYPERTENSION
     Dosage: 160 MG, QD
     Route: 048
  2. ADALAT [Concomitant]
     Indication: BLOOD PRESSURE
     Dosage: 30 MG/DAY
  3. OSCAL 500-D [Concomitant]
     Indication: CALCIUM DEFICIENCY
     Dosage: ONCE A DAY
     Route: 048
     Dates: start: 19990101
  4. ALENDRONATE SODIUM [Concomitant]
     Indication: OSTEOPOROSIS
     Dosage: ONCE A WEEK
     Route: 048
     Dates: start: 19990101
  5. AMARYL [Concomitant]
     Indication: DIABETES MELLITUS
     Dosage: TWICE DAILY
     Route: 048
     Dates: start: 20040101
  6. PRANDIN [Concomitant]
     Indication: DIABETES MELLITUS
     Dosage: TID
     Route: 048
     Dates: start: 20040101
  7. GLUCOBAY [Concomitant]
     Indication: DIABETES MELLITUS
     Dosage: 2 DF (50 MG) A DAY
     Route: 048
     Dates: start: 20060101

REACTIONS (1)
  - CARDIAC FAILURE [None]
